FAERS Safety Report 5738202-4 (Version None)
Quarter: 2008Q2

REPORT INFORMATION
  Report Type: 
  Country: None (occurrence: None)
  Receive Date: 20080514
  Receipt Date: 20080502
  Transmission Date: 20081010
  Serious: Yes (Other)
  Sender: FDA-Public Use
  Company Number: US-PFIZER INC-2008021036

PATIENT
  Age: 72 Year
  Sex: Female

DRUGS (6)
  1. CHANTIX [Suspect]
     Indication: SMOKING CESSATION THERAPY
     Route: 048
  2. HYDROCHLOROTHIAZIDE [Concomitant]
  3. COUGH SYRUP [Concomitant]
  4. NSAID'S [Concomitant]
  5. ANTIINFECTIVES [Concomitant]
  6. NAPROXEN [Concomitant]

REACTIONS (4)
  - ABNORMAL DREAMS [None]
  - EYE DISORDER [None]
  - HALLUCINATION, VISUAL [None]
  - VISION BLURRED [None]
